FAERS Safety Report 7384596-6 (Version None)
Quarter: 2011Q1

REPORT INFORMATION
  Report Type: 
  Country: None (occurrence: None)
  Receive Date: 20110322
  Receipt Date: 20110310
  Transmission Date: 20110831
  Serious: Yes (Hospitalization, Congenital Anomaly)
  Sender: FDA-Public Use
  Company Number: 2011MA002431

PATIENT
  Sex: Male
  Weight: 4.2 kg

DRUGS (2)
  1. SERTRALINE HYDROCHLORIDE [Suspect]
     Indication: DRUG EXPOSURE DURING PREGNANCY
     Dosage: 175 MG, QD, TRPL
     Route: 064
     Dates: end: 20060116
  2. SERTRALINE HYDROCHLORIDE [Suspect]
     Indication: DRUG EXPOSURE DURING PREGNANCY
     Dosage: 175 MG, QD, TRPL
     Route: 064
     Dates: end: 20060116

REACTIONS (5)
  - DRUG WITHDRAWAL SYNDROME NEONATAL [None]
  - OTITIS MEDIA [None]
  - NEONATAL PNEUMONIA [None]
  - MATERNAL DRUGS AFFECTING FOETUS [None]
  - AUTISM [None]
